FAERS Safety Report 10290896 (Version 1)
Quarter: 2014Q3

REPORT INFORMATION
  Report Type: Spontaneous
  Country: US (occurrence: None)
  Receive Date: 20140708
  Receipt Date: 20140708
  Transmission Date: 20150326
  Serious: Yes (Other)
  Sender: FDA-Public Use
  Company Number: None

PATIENT
  Age: 54 Year
  Sex: Female
  Weight: 92.53 kg

DRUGS (2)
  1. HYDROCODONE, ACETAMINOPHEN [Suspect]
     Active Substance: ACETAMINOPHEN\HYDROCODONE BITARTRATE
     Indication: PROCEDURAL PAIN
     Dosage: 1 TABLET THREE TIMES DAILY TAKEN BY MOUTH
     Route: 048
     Dates: start: 20140701, end: 20140707
  2. HYDROCODONE, ACETAMINOPHEN [Suspect]
     Active Substance: ACETAMINOPHEN\HYDROCODONE BITARTRATE
     Indication: ABDOMINAL OPERATION
     Dosage: 1 TABLET THREE TIMES DAILY TAKEN BY MOUTH
     Route: 048
     Dates: start: 20140701, end: 20140707

REACTIONS (14)
  - Swelling face [None]
  - Gingival disorder [None]
  - Tongue blistering [None]
  - Pharyngeal oedema [None]
  - Pruritus [None]
  - Gingival blister [None]
  - Gingival pain [None]
  - Feeling abnormal [None]
  - Lip swelling [None]
  - Gingival swelling [None]
  - Tenderness [None]
  - Oropharyngeal pain [None]
  - Local swelling [None]
  - Gingival inflammation [None]

NARRATIVE: CASE EVENT DATE: 20140704
